FAERS Safety Report 18446813 (Version 3)
Quarter: 2022Q1

REPORT INFORMATION
  Report Type: Report from Study
  Country: US (occurrence: US)
  Receive Date: 20201030
  Receipt Date: 20220326
  Transmission Date: 20220423
  Serious: Yes (Hospitalization, Other)
  Sender: FDA-Public Use
  Company Number: US-SHIRE-US201930849

PATIENT
  Age: 56 Year
  Sex: Female

DRUGS (1)
  1. HUMAN IMMUNOGLOBULIN G [Suspect]
     Active Substance: HUMAN IMMUNOGLOBULIN G
     Indication: Primary immunodeficiency syndrome
     Dosage: 20 GRAM, 1X/WEEK
     Route: 058

REACTIONS (15)
  - COVID-19 [Unknown]
  - Pneumonia [Not Recovered/Not Resolved]
  - Herpes zoster [Unknown]
  - Cardiac flutter [Unknown]
  - Cardiac infection [Unknown]
  - Atrial fibrillation [Unknown]
  - White blood cell count increased [Unknown]
  - Oxygen saturation abnormal [Unknown]
  - Illness [Unknown]
  - Fatigue [Unknown]
  - Malaise [Unknown]
  - Administration site pain [Unknown]
  - Therapy interrupted [Unknown]
  - Inappropriate schedule of product administration [Unknown]
  - Product supply issue [Unknown]

NARRATIVE: CASE EVENT DATE: 20190917
